FAERS Safety Report 18542353 (Version 2)
Quarter: 2021Q1

REPORT INFORMATION
  Report Type: Spontaneous
  Country: US (occurrence: US)
  Receive Date: 20201124
  Receipt Date: 20210212
  Transmission Date: 20210419
  Serious: Yes (Death, Other)
  Sender: FDA-Public Use
  Company Number: US-INCYTE CORPORATION-2020IN011637

PATIENT

DRUGS (2)
  1. JAKAFI [Suspect]
     Active Substance: RUXOLITINIB
     Dosage: 5 MILLIGRAM, BID
     Route: 065
     Dates: start: 201911
  2. JAKAFI [Suspect]
     Active Substance: RUXOLITINIB
     Indication: MYELOPROLIFERATIVE NEOPLASM
     Dosage: 5 MILLIGRAM, BID
     Route: 048
     Dates: start: 201910, end: 202011

REACTIONS (5)
  - Death [Fatal]
  - Chronic obstructive pulmonary disease [Unknown]
  - Off label use [Unknown]
  - Myeloproliferative neoplasm [Unknown]
  - Condition aggravated [Unknown]

NARRATIVE: CASE EVENT DATE: 201911
